FAERS Safety Report 16331029 (Version 1)
Quarter: 2019Q2

REPORT INFORMATION
  Report Type: Spontaneous
  Country: US (occurrence: US)
  Receive Date: 20190520
  Receipt Date: 20190520
  Transmission Date: 20190711
  Serious: No
  Sender: FDA-Public Use
  Company Number: US-BAYER-2019-098339

PATIENT
  Sex: Female

DRUGS (2)
  1. CLARITIN-D NOS [Suspect]
     Active Substance: LORATADINE\PSEUDOEPHEDRINE SULFATE
     Dosage: UNK
  2. ZYRTEC [LEVOCABASTINE HYDROCHLORIDE] [Concomitant]
     Dosage: UNK

REACTIONS (1)
  - Depression [Unknown]
